FAERS Safety Report 9473488 (Version 1)
Quarter: 2013Q3

REPORT INFORMATION
  Report Type: Spontaneous
  Country: US (occurrence: US)
  Receive Date: 20130823
  Receipt Date: 20130823
  Transmission Date: 20140515
  Serious: No
  Sender: FDA-Public Use
  Company Number: US-BRISTOL-MYERS SQUIBB COMPANY-19029982

PATIENT
  Age: 88 Year
  Sex: Female
  Weight: 56.23 kg

DRUGS (2)
  1. SPRYCEL [Suspect]
     Indication: LUNG NEOPLASM MALIGNANT
     Dosage: 3-4 YEARS AGO
  2. SPRYCEL [Suspect]
     Indication: CHRONIC LEUKAEMIA
     Dosage: 3-4 YEARS AGO

REACTIONS (4)
  - Dysuria [Unknown]
  - Swelling [Unknown]
  - Fatigue [Unknown]
  - Decreased appetite [Unknown]
